FAERS Safety Report 8318069-0 (Version None)
Quarter: 2012Q2

REPORT INFORMATION
  Report Type: 
  Country: None (occurrence: None)
  Receive Date: 20120427
  Receipt Date: 20120424
  Transmission Date: 20120825
  Serious: Yes (Hospitalization)
  Sender: FDA-Public Use
  Company Number: FR-ROCHE-1049215

PATIENT
  Age: 69 Year
  Sex: Female

DRUGS (9)
  1. MABTHERA [Suspect]
     Indication: RHEUMATOID ARTHRITIS
     Dates: start: 20090101, end: 20100101
  2. IMODIUM [Concomitant]
  3. ALUMINUM HYDROXIDE AND MAGNESIUM TRISILICATE [Concomitant]
  4. ENBREL [Suspect]
     Indication: RHEUMATOID ARTHRITIS
     Dates: start: 20080101, end: 20080101
  5. ARIXTRA [Concomitant]
  6. ACETAMINOPHEN [Concomitant]
  7. ACTEMRA [Suspect]
     Indication: RHEUMATOID ARTHRITIS
     Route: 042
     Dates: start: 20100801, end: 20101101
  8. FERROUS SULFATE TAB [Concomitant]
  9. PREDNISONE TAB [Concomitant]

REACTIONS (3)
  - LYMPHOMA [None]
  - CYTOMEGALOVIRUS COLITIS [None]
  - LYMPHOPENIA [None]
